FAERS Safety Report 12563550 (Version 3)
Quarter: 2016Q4

REPORT INFORMATION
  Report Type: Spontaneous
  Country: CH (occurrence: CH)
  Receive Date: 20160715
  Receipt Date: 20161008
  Transmission Date: 20170207
  Serious: Yes (Other)
  Sender: FDA-Public Use
  Company Number: CH-ABBVIE-16P-151-1676839-00

PATIENT
  Sex: Female

DRUGS (1)
  1. CREON [Suspect]
     Active Substance: PANCRELIPASE AMYLASE\PANCRELIPASE LIPASE\PANCRELIPASE PROTEASE
     Indication: CYSTIC FIBROSIS
     Dosage: TAKEN DURING LUNCH
     Route: 065

REACTIONS (6)
  - General physical health deterioration [Recovered/Resolved]
  - Weight decreased [Recovered/Resolved]
  - Rib fracture [Unknown]
  - Cough [Unknown]
  - Suppressed lactation [Unknown]
  - Intestinal obstruction [Unknown]
